FAERS Safety Report 10990467 (Version 2)
Quarter: 2015Q3

REPORT INFORMATION
  Report Type: Report from Study
  Country: US (occurrence: US)
  Receive Date: 20150406
  Receipt Date: 20150708
  Transmission Date: 20151125
  Serious: Yes (Hospitalization)
  Sender: FDA-Public Use
  Company Number: US-EISAI MEDICAL RESEARCH-EC-2014-000985

PATIENT
  Age: 70 Year
  Sex: Male
  Weight: 127.7 kg

DRUGS (18)
  1. TIKOSYN [Concomitant]
     Active Substance: DOFETILIDE
     Route: 048
     Dates: start: 201004
  2. VITAMIN D3 [Concomitant]
     Active Substance: CHOLECALCIFEROL
     Route: 048
     Dates: start: 2004
  3. LORCASERIN [Suspect]
     Active Substance: LORCASERIN HYDROCHLORIDE
     Route: 048
     Dates: start: 20150630
  4. ULORIC [Concomitant]
     Active Substance: FEBUXOSTAT
     Route: 048
     Dates: start: 201205
  5. XARELTO [Concomitant]
     Active Substance: RIVAROXABAN
     Route: 048
     Dates: start: 201312
  6. AMLODIPINE [Concomitant]
     Active Substance: AMLODIPINE BESYLATE
     Route: 048
     Dates: start: 2003
  7. TORSEMIDE. [Concomitant]
     Active Substance: TORSEMIDE
     Route: 048
     Dates: start: 2000
  8. FISH OIL [Concomitant]
     Active Substance: FISH OIL
     Route: 048
     Dates: start: 2004
  9. PREVACID [Concomitant]
     Active Substance: LANSOPRAZOLE
     Route: 048
     Dates: start: 2004
  10. LUMIGAN [Concomitant]
     Active Substance: BIMATOPROST
     Route: 050
     Dates: start: 2011
  11. RAMIPRIL. [Concomitant]
     Active Substance: RAMIPRIL
     Route: 048
     Dates: start: 1998
  12. TAMSULOSIN [Concomitant]
     Active Substance: TAMSULOSIN
     Route: 048
     Dates: start: 201401
  13. VITAMIN B12 [Concomitant]
     Active Substance: CYANOCOBALAMIN
     Route: 048
     Dates: start: 2004
  14. CARAFATE [Concomitant]
     Active Substance: SUCRALFATE
     Route: 048
     Dates: start: 2004
  15. LIPITOR [Concomitant]
     Active Substance: ATORVASTATIN CALCIUM
     Route: 048
     Dates: start: 1998
  16. ASPIRIN. [Concomitant]
     Active Substance: ASPIRIN
     Route: 048
     Dates: start: 1984
  17. LORCASERIN [Suspect]
     Active Substance: LORCASERIN HYDROCHLORIDE
     Indication: WEIGHT CONTROL
     Route: 048
     Dates: start: 20141003, end: 20141009
  18. METOPROLOL TARTRATE. [Concomitant]
     Active Substance: METOPROLOL TARTRATE
     Route: 048
     Dates: start: 1986

REACTIONS (2)
  - Bradycardia [Recovered/Resolved]
  - Angina pectoris [Recovered/Resolved]

NARRATIVE: CASE EVENT DATE: 20141015
